FAERS Safety Report 4318235-5 (Version None)
Quarter: 2004Q1

REPORT INFORMATION
  Report Type: 
  Country: None (occurrence: None)
  Receive Date: 20040315
  Receipt Date: 20040303
  Transmission Date: 20041129
  Serious: Yes (Other)
  Sender: FDA-Public Use
  Company Number: HQWYE515903MAR04

PATIENT
  Age: 81 Year
  Sex: Male

DRUGS (8)
  1. EUPANTOL (PANTOPRAZOLE, UNSPEC) [Suspect]
     Dosage: 40 MG
  2. MOTILIUM [Concomitant]
  3. HYZAAR [Concomitant]
  4. CAPTOPRIL [Concomitant]
  5. DISOPYRAMIDE [Concomitant]
  6. SINTROM [Concomitant]
  7. FERROUS SULFATE TAB [Concomitant]
  8. SUCRALFATE [Concomitant]

REACTIONS (1)
  - DISORIENTATION [None]
